FAERS Safety Report 9166362 (Version 1)
Quarter: 2013Q1

REPORT INFORMATION
  Report Type: Spontaneous
  Country: US (occurrence: US)
  Receive Date: 20130315
  Receipt Date: 20130315
  Transmission Date: 20140127
  Serious: No
  Sender: FDA-Public Use
  Company Number: US-PFIZER INC-2013085255

PATIENT
  Age: 66 Year
  Sex: Female

DRUGS (1)
  1. AZITHROMYCIN [Suspect]
     Dosage: UNK
     Dates: start: 201002

REACTIONS (4)
  - Drug hypersensitivity [Unknown]
  - Dizziness [Unknown]
  - Diarrhoea [Unknown]
  - Nausea [Unknown]
